FAERS Safety Report 8128932-1 (Version None)
Quarter: 2012Q1

REPORT INFORMATION
  Report Type: 
  Country: None (occurrence: None)
  Receive Date: 20120210
  Receipt Date: 20110606
  Transmission Date: 20120608
  Serious: No
  Sender: FDA-Public Use
  Company Number: US-BRISTOL-MYERS SQUIBB COMPANY-15806284

PATIENT
  Age: 46 Year
  Sex: Female
  Weight: 91 kg

DRUGS (2)
  1. ORENCIA [Suspect]
     Indication: ARTHRITIS
     Dosage: ONCE EVERY 2WEEKS BEGINNING + THEN EVERY 4WK,RECEIVED ORENCIA AT WEEKS: 0,2,4,+10
  2. IBUPROFEN [Concomitant]

REACTIONS (2)
  - BRONCHITIS [None]
  - DRUG INEFFECTIVE [None]
